FAERS Safety Report 23557820 (Version 1)
Quarter: 2024Q1

REPORT INFORMATION
  Report Type: Spontaneous
  Country: US (occurrence: US)
  Receive Date: 20240223
  Receipt Date: 20240223
  Transmission Date: 20240409
  Serious: Yes (Hospitalization)
  Sender: FDA-Public Use
  Company Number: US-DRL-USA-LIT/USA/24/0003027

PATIENT
  Age: 50 Year
  Sex: Male

DRUGS (2)
  1. CLONIDINE [Suspect]
     Active Substance: CLONIDINE
     Indication: Insomnia
  2. OLANZAPINE [Suspect]
     Active Substance: OLANZAPINE
     Indication: Insomnia
     Route: 048

REACTIONS (4)
  - Mental status changes [Unknown]
  - Drug dependence [Unknown]
  - Withdrawal syndrome [Unknown]
  - Off label use [Unknown]
